FAERS Safety Report 5376370-7 (Version None)
Quarter: 2007Q2

REPORT INFORMATION
  Report Type: 
  Country: None (occurrence: None)
  Receive Date: 20070627
  Receipt Date: 20070627
  Transmission Date: 20071010
  Serious: No
  Sender: FDA-Public Use
  Company Number: None

PATIENT
  Age: 14 Year
  Sex: Female
  Weight: 70 kg

DRUGS (3)
  1. ISOVUE-300 [Suspect]
     Indication: SCAN WITH CONTRAST
     Dosage: 130 ML X 1
     Dates: start: 20050320
  2. CLINDAMYCIN HCL [Concomitant]
  3. BENZOYL PEROXIDE [Concomitant]

REACTIONS (2)
  - HYPOAESTHESIA ORAL [None]
  - PRURITUS [None]
